FAERS Safety Report 8436530-5 (Version None)
Quarter: 2012Q2

REPORT INFORMATION
  Report Type: 
  Country: None (occurrence: None)
  Receive Date: 20120614
  Receipt Date: 20120607
  Transmission Date: 20120825
  Serious: Yes (Hospitalization)
  Sender: FDA-Public Use
  Company Number: IT-GLAXOSMITHKLINE-B0804241A

PATIENT
  Sex: Female

DRUGS (1)
  1. LAPATINIB [Suspect]
     Indication: CHORDOMA
     Dosage: 1500MG PER DAY
     Route: 048
     Dates: start: 20111226

REACTIONS (1)
  - CONFUSIONAL STATE [None]
